FAERS Safety Report 9014884 (Version 4)
Quarter: 2013Q3

REPORT INFORMATION
  Report Type: Spontaneous
  Country: US (occurrence: US)
  Receive Date: 20130116
  Receipt Date: 20130930
  Transmission Date: 20140515
  Serious: No
  Sender: FDA-Public Use
  Company Number: US-BIOGENIDEC-2013BI001686

PATIENT
  Age: 34 Year
  Sex: Female

DRUGS (1)
  1. TYSABRI [Suspect]
     Indication: MULTIPLE SCLEROSIS
     Route: 042
     Dates: start: 20091102

REACTIONS (18)
  - Sneezing [Recovered/Resolved]
  - Cognitive disorder [Not Recovered/Not Resolved]
  - Mental impairment [Unknown]
  - Pain [Unknown]
  - Sinus disorder [Not Recovered/Not Resolved]
  - Multiple allergies [Not Recovered/Not Resolved]
  - Dysphonia [Unknown]
  - Memory impairment [Unknown]
  - Increased upper airway secretion [Not Recovered/Not Resolved]
  - Mobility decreased [Unknown]
  - Back pain [Not Recovered/Not Resolved]
  - Muscle tightness [Not Recovered/Not Resolved]
  - Paraesthesia [Not Recovered/Not Resolved]
  - Pain in extremity [Unknown]
  - Malaise [Not Recovered/Not Resolved]
  - Nasopharyngitis [Recovered/Resolved]
  - Fatigue [Unknown]
  - Multiple sclerosis [Unknown]
